FAERS Safety Report 5394799-8 (Version None)
Quarter: 2007Q3

REPORT INFORMATION
  Report Type: 
  Country: None (occurrence: None)
  Receive Date: 20070723
  Receipt Date: 20070711
  Transmission Date: 20080115
  Serious: Yes (Other)
  Sender: FDA-Public Use
  Company Number: US-PFIZER INC-2007058710

PATIENT
  Sex: Female
  Weight: 56.7 kg

DRUGS (6)
  1. CHANTIX [Suspect]
     Indication: SMOKING CESSATION THERAPY
  2. ALPRAZOLAM [Concomitant]
     Indication: ANXIETY DISORDER
  3. ALPRAZOLAM [Concomitant]
     Indication: PANIC DISORDER
  4. METOPROLOL SUCCINATE [Concomitant]
     Indication: MYOCARDIAL INFARCTION
  5. ACETYLSALICYLIC ACID SRT [Concomitant]
     Indication: MYOCARDIAL INFARCTION
  6. ADVIL LIQUI-GELS [Concomitant]
     Indication: HEADACHE

REACTIONS (4)
  - ABNORMAL DREAMS [None]
  - CRYING [None]
  - DEPRESSION [None]
  - PERFORMANCE STATUS DECREASED [None]
